FAERS Safety Report 17958225 (Version 1)
Quarter: 2020Q2

REPORT INFORMATION
  Report Type: Spontaneous
  Country: PT (occurrence: PT)
  Receive Date: 20200629
  Receipt Date: 20200629
  Transmission Date: 20200714
  Serious: Yes (Hospitalization, Other)
  Sender: FDA-Public Use
  Company Number: PT-009507513-2006PRT008179

PATIENT
  Age: 63 Year
  Sex: Male

DRUGS (5)
  1. EZETIMIBE (+) ATORVASTATIN [Suspect]
     Active Substance: ATORVASTATIN\EZETIMIBE
     Indication: DYSLIPIDAEMIA
     Dosage: ATORVASTATIN + EZETIMIBE 20 + 10MG ID
  2. INDAPAMIDE. [Suspect]
     Active Substance: INDAPAMIDE
     Indication: PRODUCT USED FOR UNKNOWN INDICATION
     Dosage: 1.5 MILLIGRAM, QD, ID
  3. BUTYLSCOPOLAMINE BROMIDE [Suspect]
     Active Substance: BUTYLSCOPOLAMINE BROMIDE
     Dosage: UNK
  4. LISINOPRIL. [Suspect]
     Active Substance: LISINOPRIL
     Indication: HYPERTENSION
     Dosage: 20 MILLIGRAM, QD, ID
  5. METFORMIN [Suspect]
     Active Substance: METFORMIN HYDROCHLORIDE
     Indication: DIABETES MELLITUS
     Dosage: 500 MILLIGRAM, QD, ID

REACTIONS (6)
  - Restlessness [Unknown]
  - Tumour invasion [Recovering/Resolving]
  - Anxiety [Unknown]
  - Gastrointestinal disorder [Unknown]
  - Malaise [Unknown]
  - Pancreatic neoplasm [Recovering/Resolving]
